FAERS Safety Report 9124382 (Version 1)
Quarter: 2013Q1

REPORT INFORMATION
  Report Type: Spontaneous
  Country: FR (occurrence: FR)
  Receive Date: 20130227
  Receipt Date: 20130227
  Transmission Date: 20140127
  Serious: Yes (Death, Hospitalization, Other)
  Sender: FDA-Public Use
  Company Number: FR-ACTELION-A-CH2013-79600

PATIENT
  Age: 82 Year
  Sex: Female

DRUGS (18)
  1. TRACLEER [Suspect]
     Indication: PULMONARY ARTERIAL HYPERTENSION
     Dosage: UNK
     Route: 048
     Dates: start: 201208, end: 201210
  2. TRACLEER [Suspect]
     Dosage: 62.5 MG, BID
     Route: 048
     Dates: start: 20121219
  3. TRACLEER [Suspect]
     Dosage: 125 MG, BID
     Route: 048
  4. PREVISCAN [Concomitant]
  5. LASILIX [Concomitant]
  6. LEVOTHYROX [Concomitant]
  7. TAHOR [Concomitant]
  8. TRIATEC [Concomitant]
  9. DIFFU K [Concomitant]
  10. MIRTAZAPINE [Concomitant]
  11. SERESTA [Concomitant]
  12. PANTOPRAZOLE [Concomitant]
  13. PARACETAMOL [Concomitant]
  14. TRAMADOL HYDROCHLORIDE [Suspect]
  15. ACTISKENAN [Suspect]
     Dosage: UNK
     Dates: start: 20121119
  16. SKENAN [Concomitant]
     Dosage: UNK
     Dates: start: 20121207, end: 20121209
  17. TRAMADOL [Suspect]
     Dosage: UNK
     Dates: start: 20121201
  18. ORAMORPH [Suspect]

REACTIONS (22)
  - Death [Fatal]
  - Fall [Unknown]
  - Loss of consciousness [Unknown]
  - Rhabdomyolysis [Unknown]
  - Renal failure acute [Unknown]
  - Malaise [Unknown]
  - Nausea [Unknown]
  - Hepatic encephalopathy [Unknown]
  - Hepatic ischaemia [Unknown]
  - Skin ulcer [Unknown]
  - Abdominal pain [Unknown]
  - Cholestasis [Unknown]
  - Hepatic vein dilatation [Unknown]
  - Ascites [Unknown]
  - Dyspnoea at rest [Unknown]
  - Pain [Unknown]
  - Pericardial effusion [Unknown]
  - Hypoxia [Unknown]
  - Hypocapnia [Unknown]
  - Psychomotor skills impaired [Unknown]
  - Confusional state [Unknown]
  - Overdose [Unknown]
